FAERS Safety Report 16663960 (Version 1)
Quarter: 2019Q3

REPORT INFORMATION
  Report Type: Report from Study
  Country: US (occurrence: US)
  Receive Date: 20190802
  Receipt Date: 20190802
  Transmission Date: 20191004
  Serious: Yes (Other)
  Sender: FDA-Public Use
  Company Number: US-SA-2019SA206572

PATIENT
  Age: 54 Year
  Sex: Female

DRUGS (2)
  1. LANTUS [Concomitant]
     Active Substance: INSULIN GLARGINE
     Dosage: 100 UNITS AT MORNING AND 110 UNITS AT NIGHT
     Route: 058
  2. INSULIN GLULISINE [Suspect]
     Active Substance: INSULIN GLULISINE
     Indication: TYPE 2 DIABETES MELLITUS
     Dosage: 30 U, TID
     Route: 058

REACTIONS (6)
  - Pain in extremity [Not Recovered/Not Resolved]
  - Gait inability [Not Recovered/Not Resolved]
  - Bone fragmentation [Not Recovered/Not Resolved]
  - Hernia [Recovered/Resolved]
  - Haemorrhage [Recovered/Resolved]
  - Fibromyalgia [Not Recovered/Not Resolved]

NARRATIVE: CASE EVENT DATE: 201812
